FAERS Safety Report 9013736 (Version 2)
Quarter: 2013Q1

REPORT INFORMATION
  Report Type: Spontaneous
  Country: CN (occurrence: None)
  Receive Date: 20121231
  Receipt Date: 20130116
  Transmission Date: 20140127
  Serious: Yes (Hospitalization, Other)
  Sender: FDA-Public Use
  Company Number: VAL_01221_2012

PATIENT
  Age: 76 Year
  Sex: Male
  Weight: 74 kg

DRUGS (2)
  1. LOTENSIN /00909102/ (LOTENSIN) 10 MG (NOT SPECIFIED) [Suspect]
     Indication: DECOMPRESSION SICKNESS
     Route: 048
     Dates: start: 20091028, end: 20091107
  2. LOTENSIN /00909102/ (LOTENSIN) 10 MG (NOT SPECIFIED) [Suspect]
     Indication: ESSENTIAL HYPERTENSION
     Route: 048
     Dates: start: 20091028, end: 20091107

REACTIONS (3)
  - Cough [None]
  - Blood pressure systolic increased [None]
  - Breath sounds abnormal [None]
